FAERS Safety Report 5104731-X (Version None)
Quarter: 2006Q3

REPORT INFORMATION
  Report Type: 
  Country: None (occurrence: None)
  Receive Date: 20060731
  Receipt Date: 20060131
  Transmission Date: 20061208
  Serious: Yes (Hospitalization)
  Sender: FDA-Public Use
  Company Number: US-JNJFOC-20050107132

PATIENT
  Age: 6 Year
  Sex: Female

DRUGS (2)
  1. RISPERDAL [Suspect]
     Indication: DRUG USE FOR UNKNOWN INDICATION
     Dosage: 15 MG , ORAL
     Route: 048
     Dates: start: 20050119, end: 20050119
  2. PEDIAPRED () PREDNISOLONE SODIUM PHOSHATE [Concomitant]

REACTIONS (5)
  - BALANCE DISORDER [None]
  - EYE ROLLING [None]
  - MEDICATION ERROR [None]
  - OVERDOSE [None]
  - SOMNOLENCE [None]
